FAERS Safety Report 15785500 (Version 1)
Quarter: 2019Q1

REPORT INFORMATION
  Report Type: Spontaneous
  Country: US (occurrence: US)
  Receive Date: 20190101
  Receipt Date: 20190101
  Transmission Date: 20190417
  Serious: Yes (Death, Hospitalization)
  Sender: FDA-Public Use
  Company Number: None

PATIENT
  Age: 70 Year
  Sex: Male
  Weight: 76.23 kg

DRUGS (1)
  1. KEYTRUDA [Suspect]
     Active Substance: PEMBROLIZUMAB
     Indication: BRONCHIOLOALVEOLAR CARCINOMA
     Dosage: ?          OTHER FREQUENCY:EVERY 21 DAYS;?
     Route: 042
     Dates: start: 20180726, end: 20180907

REACTIONS (15)
  - Abdominal pain [None]
  - Colitis [None]
  - Pulmonary oedema [None]
  - Cardio-respiratory arrest [None]
  - Joint swelling [None]
  - Cardiomyopathy [None]
  - Atrial fibrillation [None]
  - Thyroid disorder [None]
  - Pulse absent [None]
  - Hypotension [None]
  - Headache [None]
  - Dyspnoea [None]
  - Cardiac failure acute [None]
  - Autoimmune myocarditis [None]
  - Respiratory distress [None]

NARRATIVE: CASE EVENT DATE: 20180801
